FAERS Safety Report 10270209 (Version 1)
Quarter: 2014Q2

REPORT INFORMATION
  Report Type: Spontaneous
  Country: US (occurrence: None)
  Receive Date: 20140627
  Receipt Date: 20140627
  Transmission Date: 20141212
  Serious: Yes (Death)
  Sender: FDA-Public Use
  Company Number: None

PATIENT
  Age: 77 Year
  Sex: Male

DRUGS (2)
  1. EXJADE 250MG NOVARTIS [Suspect]
     Indication: HEREDITARY HAEMOCHROMATOSIS
     Route: 048
     Dates: start: 20140410, end: 20140605
  2. EXJADE 500MG NOVARTIS [Suspect]
     Dates: start: 20140410, end: 20140605

REACTIONS (1)
  - Myelodysplastic syndrome [None]
